FAERS Safety Report 15684905 (Version 1)
Quarter: 2018Q4

REPORT INFORMATION
  Report Type: Spontaneous
  Country: SE (occurrence: SE)
  Receive Date: 20181204
  Receipt Date: 20181204
  Transmission Date: 20190205
  Serious: Yes (Hospitalization)
  Sender: FDA-Public Use
  Company Number: SE-PFIZER INC-2018491757

PATIENT
  Age: 59 Year
  Sex: Male

DRUGS (18)
  1. PACLITAXEL. [Suspect]
     Active Substance: PACLITAXEL
     Indication: PANCREATIC CARCINOMA
     Dosage: ^DOSAGE 190^
     Route: 042
     Dates: start: 20180302, end: 20181018
  2. GEMCITABINE [Suspect]
     Active Substance: GEMCITABINE\GEMCITABINE HYDROCHLORIDE
     Indication: PANCREATIC CARCINOMA
     Dosage: 1500 MG, UNK
     Route: 042
     Dates: start: 20180302, end: 20181018
  3. ALVEDON [Concomitant]
     Active Substance: ACETAMINOPHEN
     Dosage: UNK, AS NEEDED
  4. CILAXORAL [Concomitant]
     Active Substance: SODIUM PICOSULFATE
  5. BETAPRED [Concomitant]
     Active Substance: BETAMETHASONE SODIUM PHOSPHATE
     Dosage: UNK, AS NEEDED
  6. METFORMIN [Concomitant]
     Active Substance: METFORMIN HYDROCHLORIDE
  7. BRICANYL [Concomitant]
     Active Substance: TERBUTALINE SULFATE
     Dosage: UNK, AS NEEDED
  8. LAXIDO APELSIN [Concomitant]
     Dosage: UNK, AS NEEDED
  9. DOLCONTIN [MORPHINE SULFATE] [Concomitant]
  10. MORFIN [MORPHINE] [Concomitant]
     Dosage: UNK, AS NEEDED
  11. ACETYLCYSTEIN [Concomitant]
     Active Substance: ACETYLCYSTEINE
     Dosage: UNK, AS NEEDED
  12. IBUPROFEN. [Concomitant]
     Active Substance: IBUPROFEN
     Dosage: UNK, AS NEEDED
  13. CREON [Concomitant]
     Active Substance: PANCRELIPASE AMYLASE\PANCRELIPASE LIPASE\PANCRELIPASE PROTEASE
     Dosage: UNK
  14. INNOHEP [Concomitant]
     Active Substance: TINZAPARIN SODIUM
     Dosage: UNK
  15. CANODERM [Concomitant]
     Dosage: UNK
  16. LOPERAMID [Concomitant]
     Active Substance: LOPERAMIDE
     Dosage: UNK, AS NEEDED
  17. INSULATARD [INSULIN HUMAN INJECTION, ISOPHANE] [Concomitant]
     Dosage: UNK
  18. PRIMPERAN [Concomitant]
     Active Substance: METOCLOPRAMIDE HYDROCHLORIDE
     Dosage: UNK, AS NEEDED

REACTIONS (1)
  - Haemolytic uraemic syndrome [Recovered/Resolved]

NARRATIVE: CASE EVENT DATE: 20181031
